FAERS Safety Report 8979258 (Version 3)
Quarter: 2021Q2

REPORT INFORMATION
  Report Type: Report from Study
  Country: GB (occurrence: GB)
  Receive Date: 20121221
  Receipt Date: 20210524
  Transmission Date: 20210717
  Serious: Yes (Hospitalization, Other)
  Sender: FDA-Public Use
  Company Number: GB-AMGEN-GBRCT2012082374

PATIENT
  Sex: Female
  Weight: 71 kg

DRUGS (4)
  1. WARFARIN [Concomitant]
     Active Substance: WARFARIN
     Indication: AORTIC VALVE REPLACEMENT
     Dosage: UNK
  2. METHOTREXATE. [Concomitant]
     Active Substance: METHOTREXATE
     Dosage: UNK MILLIGRAM
  3. CYCLOSPORINE. [Concomitant]
     Active Substance: CYCLOSPORINE
     Dosage: UNK
  4. ETANERCEPT [Suspect]
     Active Substance: ETANERCEPT
     Indication: RHEUMATOID ARTHRITIS
     Dosage: 25 MILLIGRAM, 2 TIMES/WK
     Route: 065
     Dates: start: 20050715, end: 20071015

REACTIONS (1)
  - Bladder cancer [Recovered/Resolved]

NARRATIVE: CASE EVENT DATE: 20120517
